FAERS Safety Report 13799337 (Version 1)
Quarter: 2017Q3

REPORT INFORMATION
  Report Type: Spontaneous
  Country: US (occurrence: US)
  Receive Date: 20170727
  Receipt Date: 20170727
  Transmission Date: 20171127
  Serious: No
  Sender: FDA-Public Use
  Company Number: None

PATIENT
  Age: 73 Year
  Sex: Male
  Weight: 137.48 kg

DRUGS (2)
  1. AMIODARONE [Suspect]
     Active Substance: AMIODARONE
     Indication: MITRAL VALVE REPLACEMENT
     Route: 048
     Dates: start: 20100628, end: 20170331
  2. AMIODARONE [Suspect]
     Active Substance: AMIODARONE
     Indication: ATRIAL FIBRILLATION
     Route: 048
     Dates: start: 20100628, end: 20170331

REACTIONS (3)
  - Chest X-ray abnormal [None]
  - Pulmonary toxicity [None]
  - Pulmonary function test decreased [None]

NARRATIVE: CASE EVENT DATE: 20170331
